FAERS Safety Report 9849977 (Version 1)
Quarter: 2014Q1

REPORT INFORMATION
  Report Type: Spontaneous
  Country: US (occurrence: US)
  Receive Date: 20140128
  Receipt Date: 20140128
  Transmission Date: 20141002
  Serious: Yes (Other)
  Sender: FDA-Public Use
  Company Number: US-BAYER-2014-011123

PATIENT
  Sex: Female

DRUGS (1)
  1. MIRENA [Suspect]
     Dosage: 20 MCG/24HR, CONT
     Route: 015
     Dates: start: 20081028

REACTIONS (11)
  - Embedded device [None]
  - Abdominal pain lower [None]
  - Device issue [None]
  - Device difficult to use [None]
  - Pelvic pain [None]
  - Vaginal haemorrhage [None]
  - Nausea [None]
  - Dizziness [None]
  - Emotional distress [None]
  - Medical device pain [None]
  - Injury [None]
